FAERS Safety Report 22687536 (Version 4)
Quarter: 2023Q4

REPORT INFORMATION
  Report Type: Report from Study
  Country: US (occurrence: US)
  Receive Date: 20230710
  Receipt Date: 20231013
  Transmission Date: 20240110
  Serious: Yes (Hospitalization)
  Sender: FDA-Public Use
  Company Number: US-UCBSA-2022068959

PATIENT
  Sex: Female

DRUGS (4)
  1. FINTEPLA [Suspect]
     Active Substance: FENFLURAMINE
     Indication: Severe myoclonic epilepsy of infancy
     Dosage: 5.8 MILLILITER, 2X/DAY (BID)
     Dates: start: 20221102
  2. FINTEPLA [Suspect]
     Active Substance: FENFLURAMINE
     Dosage: 5.8 MILLILITER, 2X/DAY (BID)
  3. FINTEPLA [Suspect]
     Active Substance: FENFLURAMINE
     Dosage: 5.8 ML BY ORAL/FEEDING TUBE ROUTE TWICE DAILY
     Route: 048
  4. FINTEPLA [Suspect]
     Active Substance: FENFLURAMINE
     Dosage: 5.8 MILLILITER,  BY ORAL/FEEDING TUBE ROUTE TWICE DAILY2X/DAY (BID)
     Route: 048

REACTIONS (4)
  - Chemotherapy [Recovered/Resolved]
  - Hospitalisation [Unknown]
  - Medical device site infection [Not Recovered/Not Resolved]
  - Gastrostomy [Not Recovered/Not Resolved]

NARRATIVE: CASE EVENT DATE: 20220101
